FAERS Safety Report 12059124 (Version 1)
Quarter: 2016Q1

REPORT INFORMATION
  Report Type: Spontaneous
  Country: US (occurrence: None)
  Receive Date: 20160209
  Receipt Date: 20160209
  Transmission Date: 20160526
  Serious: Yes (Other)
  Sender: FDA-Public Use
  Company Number: None

PATIENT
  Age: 54 Year
  Sex: Male
  Weight: 83.92 kg

DRUGS (9)
  1. STRATTERA [Suspect]
     Active Substance: ATOMOXETINE HYDROCHLORIDE
     Indication: ATTENTION DEFICIT/HYPERACTIVITY DISORDER
     Route: 048
     Dates: start: 20160129, end: 20160208
  2. MULTI-VITAMIN [Concomitant]
     Active Substance: .ALPHA.-TOCOPHEROL ACETATE, DL-\ASCORBIC ACID\CYANOCOBALAMIN\FLUORIDE ION\FOLIC ACID\NIACIN\PYRIDOXINE\RIBOFLAVIN\THIAMINE\VITAMIN A\VITAMIN D
  3. PROSTARA BETAVITAL 1850MG (WITH ZINC 7.5MG AND SELENIUM 50MCG) [Concomitant]
  4. ATORVASTATIN [Concomitant]
     Active Substance: ATORVASTATIN
  5. VIVA LABS KRILL OIL [Concomitant]
  6. COQ10 [Concomitant]
     Active Substance: UBIDECARENONE
  7. C-PAP MACHINE [Concomitant]
     Active Substance: DEVICE
  8. PROBIOTIC [Concomitant]
     Active Substance: PROBIOTICS NOS
  9. SERTRALINE [Concomitant]
     Active Substance: SERTRALINE HYDROCHLORIDE

REACTIONS (9)
  - Dysuria [None]
  - Urinary hesitation [None]
  - Discomfort [None]
  - Infection [None]
  - Fatigue [None]
  - Nasal polyps [None]
  - Product substitution issue [None]
  - Painful ejaculation [None]
  - Agitation [None]

NARRATIVE: CASE EVENT DATE: 20160207
